FAERS Safety Report 18266856 (Version 1)
Quarter: 2020Q3

REPORT INFORMATION
  Report Type: Spontaneous
  Country: US (occurrence: US)
  Receive Date: 20200915
  Receipt Date: 20200915
  Transmission Date: 20201103
  Serious: No
  Sender: FDA-Public Use
  Company Number: US-MYLANLABS-2020M1077282

PATIENT
  Sex: Female
  Weight: 57 kg

DRUGS (1)
  1. ESTRADIOL VAGINAL CREAM USP [Suspect]
     Active Substance: ESTRADIOL
     Indication: VULVOVAGINAL DRYNESS
     Dosage: TWICE WEEKLY(1 PEA SIZE DAB, TWICE WEEKLY)
     Route: 067

REACTIONS (4)
  - Micturition urgency [Recovered/Resolved]
  - Cystitis noninfective [Recovered/Resolved]
  - Burning sensation [Recovered/Resolved]
  - Pain [Recovered/Resolved]
